FAERS Safety Report 18498599 (Version 1)
Quarter: 2020Q4

REPORT INFORMATION
  Report Type: Not Available
  Country: None (occurrence: None)
  Receive Date: 20201112
  Receipt Date: 20201112
  Transmission Date: 20210114
  Serious: No
  Sender: FDA-Public Use
  Company Number: US-AKORN INC.-154749

PATIENT
  Age: 13 Year
  Sex: Female

DRUGS (1)
  1. ETHOSUXIMIDE ORAL SOLUTION [Suspect]
     Active Substance: ETHOSUXIMIDE

REACTIONS (1)
  - Hiccups [Not Recovered/Not Resolved]
